FAERS Safety Report 4573895-9 (Version None)
Quarter: 2005Q1

REPORT INFORMATION
  Report Type: 
  Country: None (occurrence: None)
  Receive Date: 20050203
  Receipt Date: 20050127
  Transmission Date: 20050727
  Serious: Yes (Hospitalization, Other)
  Sender: FDA-Public Use
  Company Number: A-US2003-03313

PATIENT
  Age: 51 Year
  Sex: Female

DRUGS (10)
  1. TRACLEER [Suspect]
     Indication: PULMONARY HYPERTENSION
     Dosage: 62.5 MG, BID, ORAL
     Route: 048
     Dates: start: 20030801, end: 20030825
  2. TRACLEER [Suspect]
     Indication: PULMONARY HYPERTENSION
     Dosage: 62.5 MG, BID, ORAL
     Route: 048
     Dates: start: 20031019, end: 20031020
  3. CYCLOBENZAPRINE (CYCLOBENZAPRINE) [Concomitant]
  4. NEXIUM [Concomitant]
  5. FLONASE [Concomitant]
  6. HYDROCODONE (HYDROCODONE) [Concomitant]
  7. REGLAN [Concomitant]
  8. TRENTAL [Concomitant]
  9. SYNTHROID [Concomitant]
  10. ALBUTEROL [Concomitant]

REACTIONS (14)
  - ABDOMINAL PAIN UPPER [None]
  - BILIARY NEOPLASM [None]
  - CHILLS [None]
  - DECREASED APPETITE [None]
  - DIARRHOEA [None]
  - FATIGUE [None]
  - HEADACHE [None]
  - IRON DEFICIENCY ANAEMIA [None]
  - NAUSEA [None]
  - PAIN [None]
  - PANCYTOPENIA [None]
  - PLATELET COUNT DECREASED [None]
  - PYREXIA [None]
  - SINUSITIS [None]
